FAERS Safety Report 10252697 (Version 1)
Quarter: 2014Q2

REPORT INFORMATION
  Report Type: Spontaneous
  Country: US (occurrence: US)
  Receive Date: 20140623
  Receipt Date: 20140623
  Transmission Date: 20141212
  Serious: Yes (Other)
  Sender: FDA-Public Use
  Company Number: US-ACTAVIS-2014-12938

PATIENT
  Sex: Male

DRUGS (4)
  1. NORCO (UNKNOWN) (WATSON LABORATORIES) [Suspect]
     Indication: ANALGESIC THERAPY
     Dosage: UNK, UNKNOWN
     Route: 048
  2. MORPHINE [Suspect]
     Indication: ANALGESIC THERAPY
     Dosage: UNK, UNKNOWN
     Route: 065
  3. PERCOCET                           /00446701/ [Suspect]
     Indication: ANALGESIC THERAPY
     Dosage: UNK, UNKNOWN
     Route: 048
  4. OXYCONTIN [Suspect]
     Indication: ANALGESIC THERAPY
     Dosage: UNK, UNKNOWN
     Route: 048

REACTIONS (1)
  - Cerebrovascular accident [Unknown]
